FAERS Safety Report 24206541 (Version 2)
Quarter: 2024Q3

REPORT INFORMATION
  Report Type: Spontaneous
  Country: FR (occurrence: FR)
  Receive Date: 20240813
  Receipt Date: 20240909
  Transmission Date: 20241016
  Serious: Yes (Other)
  Sender: ELI LILLY AND CO
  Company Number: None

PATIENT
  Age: 84 Year
  Sex: Female
  Weight: 48 kg

DRUGS (2)
  1. GEMZAR [Suspect]
     Active Substance: GEMCITABINE HYDROCHLORIDE
     Indication: Cholangiocarcinoma
     Dosage: 1216.74 MG, CYCLICAL
     Route: 042
     Dates: start: 20231026, end: 20240307
  2. IMFINZI [Suspect]
     Active Substance: DURVALUMAB
     Indication: Cholangiocarcinoma
     Dosage: 1500 MG, CYCLICAL
     Route: 042
     Dates: start: 20231026, end: 20240612

REACTIONS (1)
  - Organising pneumonia [Recovering/Resolving]

NARRATIVE: CASE EVENT DATE: 20231220
